FAERS Safety Report 4961090-0 (Version None)
Quarter: 2006Q1

REPORT INFORMATION
  Report Type: 
  Country: None (occurrence: None)
  Receive Date: 20060327
  Receipt Date: 20060321
  Transmission Date: 20060701
  Serious: Yes (Hospitalization)
  Sender: FDA-Public Use
  Company Number: 200610996BWH

PATIENT
  Age: 56 Year
  Sex: Male
  Weight: 106.5953 kg

DRUGS (5)
  1. NEXAVAR [Suspect]
     Indication: THYROID GLAND CANCER
     Dosage: SEE IMAGE
     Route: 048
     Dates: start: 20060101, end: 20060213
  2. NEXAVAR [Suspect]
     Indication: THYROID GLAND CANCER
     Dosage: SEE IMAGE
     Route: 048
     Dates: start: 20060223
  3. ATENOLOL [Concomitant]
  4. ACCUPRIL [Concomitant]
  5. SYNTHROID [Concomitant]

REACTIONS (3)
  - ATRIAL FIBRILLATION [None]
  - CONDITION AGGRAVATED [None]
  - HYPERTENSION [None]
